FAERS Safety Report 7522322-8 (Version None)
Quarter: 2011Q2

REPORT INFORMATION
  Report Type: 
  Country: None (occurrence: None)
  Receive Date: 20110603
  Receipt Date: 20110520
  Transmission Date: 20111010
  Serious: Yes (Other)
  Sender: FDA-Public Use
  Company Number: PHHY2011JP44560

PATIENT
  Age: 78 Year
  Sex: Female

DRUGS (4)
  1. DIOVAN [Suspect]
     Dosage: UNK
     Route: 048
     Dates: start: 20100401
  2. EXFORGE [Suspect]
     Dosage: 1 DF, DAILY
     Route: 048
  3. DIOVAN [Suspect]
     Dosage: UNK
     Route: 048
     Dates: start: 20100401
  4. ENALAPRIL MALEATE [Suspect]

REACTIONS (3)
  - BLOOD GLUCOSE INCREASED [None]
  - GLYCOSYLATED HAEMOGLOBIN INCREASED [None]
  - COUGH [None]
